FAERS Safety Report 4638940-0 (Version None)
Quarter: 2005Q2

REPORT INFORMATION
  Report Type: 
  Country: None (occurrence: None)
  Receive Date: 20050419
  Receipt Date: 20050322
  Transmission Date: 20051028
  Serious: Yes (Life-Threatening, Hospitalization)
  Sender: FDA-Public Use
  Company Number: JP-GLAXOSMITHKLINE-B0375956A

PATIENT
  Age: 59 Year
  Sex: Male

DRUGS (2)
  1. VALTREX [Suspect]
     Indication: HERPES ZOSTER
     Dosage: 1000MG THREE TIMES PER DAY
     Route: 048
     Dates: start: 20050316, end: 20050319
  2. VOLTAREN [Concomitant]
     Route: 065

REACTIONS (4)
  - ANOREXIA [None]
  - DEMENTIA [None]
  - ENCEPHALOPATHY [None]
  - RENAL FAILURE ACUTE [None]
